FAERS Safety Report 23323822 (Version 4)
Quarter: 2024Q3

REPORT INFORMATION
  Report Type: Spontaneous
  Country: US (occurrence: US)
  Receive Date: 20231220
  Receipt Date: 20240809
  Transmission Date: 20241017
  Serious: Yes (Death, Hospitalization, Other)
  Sender: ROCHE
  Company Number: US-ROCHE-3451712

PATIENT
  Sex: Male

DRUGS (15)
  1. GLOFITAMAB [Suspect]
     Active Substance: GLOFITAMAB
     Indication: B-cell lymphoma
     Route: 065
     Dates: start: 20220419, end: 20220419
  2. GLOFITAMAB [Suspect]
     Active Substance: GLOFITAMAB
     Route: 058
     Dates: start: 20220426, end: 20220426
  3. GLOFITAMAB [Suspect]
     Active Substance: GLOFITAMAB
     Route: 065
     Dates: start: 20220505, end: 20220505
  4. RITUXAN [Suspect]
     Active Substance: RITUXIMAB
     Indication: Diffuse large B-cell lymphoma
     Dosage: PATIENT RECEIVED 6 INFUSIONS IN TOTAL
     Route: 041
     Dates: start: 20211109, end: 20220222
  5. RITUXAN [Suspect]
     Active Substance: RITUXIMAB
     Indication: B-cell lymphoma
  6. TOCILIZUMAB [Suspect]
     Active Substance: TOCILIZUMAB
     Indication: Hypersensitivity
     Route: 065
     Dates: start: 20220515, end: 20220515
  7. GAZYVA [Suspect]
     Active Substance: OBINUTUZUMAB
     Indication: Product used for unknown indication
     Route: 065
  8. OXALIPLATIN [Suspect]
     Active Substance: OXALIPLATIN
     Indication: Diffuse large B-cell lymphoma
     Dosage: RECEIVED 6 INFUSIONS IN TOTAL
     Route: 042
     Dates: start: 20211109, end: 20220222
  9. GEMCITABINE [Suspect]
     Active Substance: GEMCITABINE
     Indication: Diffuse large B-cell lymphoma
     Dosage: RECEIVED 6 INFUSIONS IN TOTAL
     Route: 042
     Dates: start: 20211109, end: 20220222
  10. CYCLOPHOSPHAMIDE [Concomitant]
     Active Substance: CYCLOPHOSPHAMIDE
  11. DOXORUBICIN [Concomitant]
     Active Substance: DOXORUBICIN
  12. VINCRISTINE [Concomitant]
     Active Substance: VINCRISTINE
  13. PREDNISONE [Concomitant]
     Active Substance: PREDNISONE
  14. AZACITIDINE [Concomitant]
     Active Substance: AZACITIDINE
  15. METOPROLOL [Concomitant]
     Active Substance: METOPROLOL

REACTIONS (8)
  - Infusion related reaction [Unknown]
  - Malignant neoplasm progression [Fatal]
  - Sepsis [Fatal]
  - Heart rate increased [Unknown]
  - Arrhythmia [Unknown]
  - Cytokine release syndrome [Unknown]
  - Weight increased [Unknown]
  - Pain [Unknown]
